FAERS Safety Report 17165944 (Version 6)
Quarter: 2020Q1

REPORT INFORMATION
  Report Type: Spontaneous
  Country: PL (occurrence: PL)
  Receive Date: 20191217
  Receipt Date: 20200218
  Transmission Date: 20200409
  Serious: Yes (Death, Life-Threatening, Hospitalization, Other)
  Sender: FDA-Public Use
  Company Number: PL-MYLANLABS-2019M1125341

PATIENT
  Age: 46 Year
  Sex: Female

DRUGS (39)
  1. AMOXICILLIN/CLAVULANIC ACID [Interacting]
     Active Substance: AMOXICILLIN\CLAVULANIC ACID
     Indication: URINARY TRACT INFECTION
     Dosage: UNK
     Route: 065
  2. AMOXICILLIN/CLAVULANIC ACID [Interacting]
     Active Substance: AMOXICILLIN\CLAVULANIC ACID
     Indication: BACTERIAL TEST POSITIVE
  3. OLANZAPINE. [Interacting]
     Active Substance: OLANZAPINE
     Dosage: LONG-TERM THERAPY, DAILY 10 MG
  4. ITOPRIDE [Interacting]
     Active Substance: ITOPRIDE
     Indication: GASTROOESOPHAGEAL REFLUX DISEASE
     Dosage: 150 MILLIGRAM, QD 50 MG, TID
     Route: 048
  5. NIFUROXAZIDE [Concomitant]
     Active Substance: NIFUROXAZIDE
     Dosage: UNK
     Route: 065
  6. CEFUROXIME. [Interacting]
     Active Substance: CEFUROXIME
     Indication: BACTERIAL INFECTION
     Dosage: UNK
     Route: 065
  7. PANTOPRAZOLE [Interacting]
     Active Substance: PANTOPRAZOLE
     Dosage: UNK
     Route: 048
  8. OLANZAPINE. [Interacting]
     Active Substance: OLANZAPINE
     Dosage: 10 MILLIGRAM, QD
     Route: 065
  9. CIPROFLOXACINUM [Interacting]
     Active Substance: CIPROFLOXACIN
     Indication: ANTIBIOTIC THERAPY
     Dosage: UNK
     Route: 065
  10. CEFUROXIME. [Interacting]
     Active Substance: CEFUROXIME
     Indication: URINARY TRACT INFECTION
     Dosage: UNK
     Route: 065
  11. OLANZAPINE. [Interacting]
     Active Substance: OLANZAPINE
     Dosage: 10 MILLIGRAM, QD
     Route: 048
  12. ITOPRIDE [Interacting]
     Active Substance: ITOPRIDE
     Dosage: 50 MILLIGRAM, Q8H
     Route: 065
  13. TRIMETHOPRIM SULFAMETHOXAZOLE [Interacting]
     Active Substance: SULFAMETHOXAZOLE\TRIMETHOPRIM
     Indication: ANTIBIOTIC THERAPY
  14. PANTOPRAZOLE [Interacting]
     Active Substance: PANTOPRAZOLE
     Dosage: 1 DOSAGE FORM, QD
     Route: 048
  15. NIFUROKSAZYD [Interacting]
     Active Substance: NIFUROXAZIDE
     Indication: ANTIBIOTIC THERAPY
  16. LEVOFLOXACIN. [Interacting]
     Active Substance: LEVOFLOXACIN
     Indication: BACTERIAL INFECTION
     Dosage: UNK
     Route: 065
  17. LEVOFLOXACIN. [Interacting]
     Active Substance: LEVOFLOXACIN
     Indication: ANTIBIOTIC THERAPY
  18. CIPROFLOXACIN. [Interacting]
     Active Substance: CIPROFLOXACIN
     Indication: BACTERIAL TEST POSITIVE
  19. ARIPIPRAZOLE. [Interacting]
     Active Substance: ARIPIPRAZOLE
     Indication: BIPOLAR DISORDER
     Dosage: 7.5 MILLIGRAM, QD
     Route: 065
  20. AMOXICILLIN/CLAVULANIC ACID [Interacting]
     Active Substance: AMOXICILLIN\CLAVULANIC ACID
     Indication: ANTIBIOTIC THERAPY
  21. PANTOPRAZOLE [Suspect]
     Active Substance: PANTOPRAZOLE
     Indication: GASTROOESOPHAGEAL REFLUX DISEASE
     Dosage: 40 MILLIGRAM, QD
     Route: 048
  22. NIFUROKSAZYD [Interacting]
     Active Substance: NIFUROXAZIDE
     Indication: DIARRHOEA
     Dosage: UNK
     Route: 065
  23. CIPROFLOXACIN. [Interacting]
     Active Substance: CIPROFLOXACIN
     Indication: ANTIBIOTIC THERAPY
  24. CEFUROXIME. [Interacting]
     Active Substance: CEFUROXIME
     Indication: ANTIBIOTIC THERAPY
  25. PANTOPRAZOLE [Suspect]
     Active Substance: PANTOPRAZOLE
     Indication: GASTROOESOPHAGEAL REFLUX DISEASE
     Dosage: UNK
     Route: 065
  26. OLANZAPINE. [Interacting]
     Active Substance: OLANZAPINE
     Dosage: UNK
     Route: 048
  27. NIFUROKSAZYD [Interacting]
     Active Substance: NIFUROXAZIDE
     Indication: URINARY TRACT INFECTION
  28. LEVOFLOXACIN. [Interacting]
     Active Substance: LEVOFLOXACIN
     Indication: URINARY TRACT INFECTION
  29. ITOPRIDE [Interacting]
     Active Substance: ITOPRIDE
     Indication: BIPOLAR DISORDER
     Dosage: 50 MILLIGRAM, QD
     Route: 048
  30. OLANZAPINE. [Interacting]
     Active Substance: OLANZAPINE
     Dosage: UNK
     Route: 065
  31. ITOPRIDE [Interacting]
     Active Substance: ITOPRIDE
     Dosage: 3 DOSAGE FORM, QD
     Route: 048
  32. CIPROFLOXACIN. [Interacting]
     Active Substance: CIPROFLOXACIN
     Indication: URINARY TRACT INFECTION
     Dosage: UNK
     Route: 065
  33. CIPROFLOXACIN. [Interacting]
     Active Substance: CIPROFLOXACIN
     Indication: LEUKOCYTOSIS
  34. TRIMETHOPRIM SULFAMETHOXAZOLE [Interacting]
     Active Substance: SULFAMETHOXAZOLE\TRIMETHOPRIM
     Indication: URINARY TRACT INFECTION
  35. TRIMETHOPRIM. [Interacting]
     Active Substance: TRIMETHOPRIM
     Indication: PRODUCT USED FOR UNKNOWN INDICATION
     Dosage: UNK
     Route: 065
  36. ARIPIPRAZOLE. [Interacting]
     Active Substance: ARIPIPRAZOLE
     Dosage: UNK
     Route: 048
  37. OLANZAPINE. [Interacting]
     Active Substance: OLANZAPINE
     Indication: BIPOLAR DISORDER
     Dosage: 10 MILLIGRAM, QD
     Route: 048
  38. TRIMETHOPRIM SULFAMETHOXAZOLE [Interacting]
     Active Substance: SULFAMETHOXAZOLE\TRIMETHOPRIM
     Indication: BACTERIAL INFECTION
     Dosage: UNK
     Route: 065
  39. SULFAMETHOXAZOLE [Interacting]
     Active Substance: SULFAMETHOXAZOLE
     Indication: PRODUCT USED FOR UNKNOWN INDICATION
     Dosage: UNK
     Route: 065

REACTIONS (25)
  - Inhibitory drug interaction [Not Recovered/Not Resolved]
  - Intestinal perforation [Fatal]
  - Abdominal pain [Fatal]
  - Bacterial test positive [Unknown]
  - Drug resistance [Unknown]
  - Urine odour abnormal [Not Recovered/Not Resolved]
  - Parosmia [Unknown]
  - Taste disorder [Unknown]
  - Peritonitis [Fatal]
  - Diarrhoea [Unknown]
  - Condition aggravated [Unknown]
  - Gastrooesophageal reflux disease [Unknown]
  - Breath odour [Unknown]
  - Dysbiosis [Unknown]
  - Megacolon [Unknown]
  - White blood cells urine [Unknown]
  - Dyspepsia [Unknown]
  - Pseudomembranous colitis [Unknown]
  - Drug ineffective [Unknown]
  - Trimethylaminuria [Unknown]
  - Abdominal pain upper [Unknown]
  - Clostridium difficile infection [Fatal]
  - Pyrexia [Unknown]
  - Drug interaction [Unknown]
  - Oral discomfort [Unknown]
